FAERS Safety Report 6774915-3 (Version None)
Quarter: 2010Q2

REPORT INFORMATION
  Report Type: 
  Country: None (occurrence: None)
  Receive Date: 20100616
  Receipt Date: 20100616
  Transmission Date: 20101027
  Serious: Yes (Hospitalization)
  Sender: FDA-Public Use
  Company Number: None

PATIENT
  Age: 45 Year
  Sex: Female
  Weight: 104.7 kg

DRUGS (1)
  1. PRALATREXATE 20MG/ML ALLOS THERAPEUTICS [Suspect]
     Indication: T-CELL LYMPHOMA
     Dosage: 31MG -15MG/M2/DOSE- ONCE IV BOLUS
     Route: 040
     Dates: start: 20100603, end: 20100603

REACTIONS (7)
  - HAEMODIALYSIS [None]
  - MUCOSAL INFLAMMATION [None]
  - ORAL DISORDER [None]
  - ORAL PAIN [None]
  - PYREXIA [None]
  - RENAL FAILURE [None]
  - TOXIC SKIN ERUPTION [None]
